FAERS Safety Report 6716613-8 (Version None)
Quarter: 2010Q2

REPORT INFORMATION
  Report Type: 
  Country: None (occurrence: None)
  Receive Date: 20100507
  Receipt Date: 20100427
  Transmission Date: 20101027
  Serious: Yes (Disabling)
  Sender: FDA-Public Use
  Company Number: FI-MERCK-1004FIN00006

PATIENT
  Age: 66 Year
  Sex: Male

DRUGS (8)
  1. FOSAMAX [Suspect]
     Indication: OSTEOPENIA
     Route: 048
     Dates: start: 20100220, end: 20100329
  2. CARBIDOPA AND ENTACAPONE AND LEVODOPA [Suspect]
     Indication: PARKINSON'S DISEASE
     Route: 048
  3. CARBIDOPA AND LEVODOPA [Suspect]
     Indication: PARKINSON'S DISEASE
     Route: 048
  4. CARBIDOPA AND LEVODOPA [Suspect]
     Route: 065
  5. PRAMIPEXOLE DIHYDROCHLORIDE [Suspect]
     Indication: PARKINSON'S DISEASE
     Route: 048
  6. SELEGILINE HYDROCHLORIDE [Suspect]
     Indication: PARKINSON'S DISEASE
     Route: 048
  7. ZOPICLONE [Concomitant]
     Route: 065
  8. CALCIUM CARBONATE AND CHOLECALCIFEROL [Concomitant]
     Route: 048

REACTIONS (1)
  - PARKINSON'S DISEASE [None]
